FAERS Safety Report 9418751 (Version 1)
Quarter: 2013Q3

REPORT INFORMATION
  Report Type: Spontaneous
  Country: US (occurrence: US)
  Receive Date: 20130725
  Receipt Date: 20130725
  Transmission Date: 20140515
  Serious: No
  Sender: FDA-Public Use
  Company Number: US-PFIZER INC-2013216103

PATIENT
  Age: 77 Year
  Sex: Female

DRUGS (2)
  1. RAMIPRIL [Suspect]
     Dosage: 10 MG, DAILY
     Route: 048
     Dates: start: 20111107
  2. NEXIUM [Suspect]
     Dosage: 40 MG, DAILY
     Route: 048
     Dates: start: 20111118

REACTIONS (5)
  - Hypotension [Unknown]
  - Headache [Unknown]
  - Flatulence [Unknown]
  - Cough [Unknown]
  - Off label use [Unknown]
